FAERS Safety Report 22056825 (Version 2)
Quarter: 2023Q4

REPORT INFORMATION
  Report Type: Spontaneous
  Country: GB (occurrence: None)
  Receive Date: 20230303
  Receipt Date: 20231007
  Transmission Date: 20240109
  Serious: Yes (Other)
  Sender: FDA-Public Use
  Company Number: GB-ROCHE-3146637

PATIENT
  Age: 50 Year
  Sex: Female

DRUGS (12)
  1. TOCILIZUMAB [Suspect]
     Active Substance: TOCILIZUMAB
     Indication: Rheumatoid arthritis
     Route: 058
     Dates: start: 20181002
  2. TOCILIZUMAB [Suspect]
     Active Substance: TOCILIZUMAB
     Route: 058
     Dates: start: 2019
  3. SERTRALINE [Concomitant]
     Active Substance: SERTRALINE HYDROCHLORIDE
  4. MIRTAZAPINE [Concomitant]
     Active Substance: MIRTAZAPINE
  5. QUETIAPINE [Concomitant]
     Active Substance: QUETIAPINE
  6. ZOPICLONE [Concomitant]
     Active Substance: ZOPICLONE
  7. DIAZEPAM [Concomitant]
     Active Substance: DIAZEPAM
  8. ATENOLOL [Concomitant]
     Active Substance: ATENOLOL
  9. OMEPRAZOLE [Concomitant]
     Active Substance: OMEPRAZOLE
  10. TRAMADOL [Concomitant]
     Active Substance: TRAMADOL\TRAMADOL HYDROCHLORIDE
  11. PROCHLORPERAZINE [Concomitant]
     Active Substance: PROCHLORPERAZINE
  12. HRT (UNK INGREDIENTS) [Concomitant]

REACTIONS (6)
  - COVID-19 [Unknown]
  - Mental disorder [Unknown]
  - Memory impairment [Unknown]
  - Bacterial vulvovaginitis [Unknown]
  - Candida infection [Unknown]
  - Pain [Unknown]
